FAERS Safety Report 12737612 (Version 1)
Quarter: 2016Q3

REPORT INFORMATION
  Report Type: Spontaneous
  Country: CH (occurrence: CH)
  Receive Date: 20160912
  Receipt Date: 20160912
  Transmission Date: 20161109
  Serious: Yes (Hospitalization)
  Sender: FDA-Public Use
  Company Number: CH-TEVA-690231ISR

PATIENT
  Age: 51 Year
  Sex: Male
  Weight: 83 kg

DRUGS (9)
  1. ESOMEP [Concomitant]
     Active Substance: ESOMEPRAZOLE
     Route: 048
  2. PANTOZOL [Concomitant]
     Active Substance: PANTOPRAZOLE SODIUM
     Route: 048
     Dates: start: 20140402
  3. OLFEN [Suspect]
     Active Substance: DICLOFENAC SODIUM
     Indication: PROCEDURAL PAIN
     Dosage: 150 MILLIGRAM DAILY;
     Route: 048
     Dates: start: 20140402, end: 20140407
  4. CRESTOR [Suspect]
     Active Substance: ROSUVASTATIN CALCIUM
     Indication: DYSLIPIDAEMIA
     Dosage: 5 MILLIGRAM DAILY; STRENGTH 10 MG, TAKEN HALF A TABLET ONCE A DAY
     Route: 048
     Dates: end: 20160608
  5. XYZAL [Concomitant]
     Active Substance: LEVOCETIRIZINE DIHYDROCHLORIDE
     Route: 048
  6. DAFALGAN [Suspect]
     Active Substance: ACETAMINOPHEN
     Indication: GROIN PAIN
     Dosage: 4 GRAM DAILY; STOP DATE UNKNOWN, STRENGTH 1 GRAM
     Route: 048
     Dates: start: 20140402
  7. NOVALGIN [Concomitant]
     Active Substance: METAMIZOLE SODIUM
     Indication: GROIN PAIN
     Route: 048
     Dates: start: 20140402
  8. IRFEN 400 [Suspect]
     Active Substance: IBUPROFEN
     Indication: GROIN PAIN
     Dosage: 1200 MILLIGRAM DAILY;
     Route: 048
     Dates: start: 20160527, end: 20160531
  9. DAFALGAN [Suspect]
     Active Substance: ACETAMINOPHEN
     Dosage: 1 TO 2 DF TAKEN AS NECESSARY, START DATE UNKNOWN, STRENGTH 1 GRAM
     Route: 048
     Dates: end: 20160531

REACTIONS (2)
  - Autoimmune hepatitis [Recovering/Resolving]
  - Autoimmune hepatitis [Recovered/Resolved]

NARRATIVE: CASE EVENT DATE: 201404
